FAERS Safety Report 7509574-5 (Version None)
Quarter: 2011Q2

REPORT INFORMATION
  Report Type: 
  Country: None (occurrence: None)
  Receive Date: 20110519
  Receipt Date: 20110505
  Transmission Date: 20111010
  Serious: Yes (Life-Threatening, Hospitalization, Disabling)
  Sender: FDA-Public Use
  Company Number: 2011-00504

PATIENT
  Age: 87 Year
  Sex: Male

DRUGS (12)
  1. RAMIPRIL [Concomitant]
  2. OMEPRAZOLE [Concomitant]
  3. SENNA-MINT WAF [Concomitant]
  4. FUROSEMIDE [Concomitant]
  5. RIFAMPICIN [Concomitant]
  6. CITALOPRAM HYDROBROMIDE [Concomitant]
  7. CARBOHYDRATE + FAT + PROTEIN (FORTISIP) [Concomitant]
  8. ISONIZAIDE (ISONIAZID) [Concomitant]
  9. VITAMIN B (HYDROXOCOBALAMIN) [Concomitant]
  10. SIMVASTATIN [Suspect]
     Indication: CARDIAC FAILURE
     Dosage: 40 MG (40 MG, 1 IN 1 D), ORAL
     Route: 048
  11. BISOPROLOL FUMARATE [Concomitant]
  12. PYRAZINAMIDE [Concomitant]

REACTIONS (4)
  - PULMONARY FIBROSIS [None]
  - COUGH [None]
  - DYSPNOEA [None]
  - WEIGHT DECREASED [None]
